FAERS Safety Report 15797239 (Version 3)
Quarter: 2019Q4

REPORT INFORMATION
  Report Type: Report from Study
  Country: KR (occurrence: KR)
  Receive Date: 20190108
  Receipt Date: 20191205
  Transmission Date: 20200122
  Serious: Yes (Other)
  Sender: FDA-Public Use
  Company Number: KR-ROCHE-2209528

PATIENT
  Age: 70 Year
  Sex: Male

DRUGS (27)
  1. TACENOL [Concomitant]
     Route: 048
     Dates: start: 20181101, end: 20181101
  2. SEPTRIN [Concomitant]
     Active Substance: SULFAMETHOXAZOLE\TRIMETHOPRIM
     Dosage: 400/80 MG
     Route: 048
     Dates: start: 20181101, end: 20181107
  3. LEVOTUSS [Concomitant]
     Active Substance: LEVODROPROPIZINE
     Indication: COUGH
     Route: 048
     Dates: start: 20181028, end: 20181104
  4. DEXAMETHASONE DISODIUM PHOSPHATE [Concomitant]
     Active Substance: DEXAMETHASONE SODIUM PHOSPHATE
     Route: 042
     Dates: start: 20181101, end: 20181101
  5. BANAN [Concomitant]
     Active Substance: CEFPODOXIME PROXETIL
     Indication: PNEUMONIA
     Route: 048
     Dates: start: 20181106, end: 20181122
  6. OBINUTUZUMAB. [Suspect]
     Active Substance: OBINUTUZUMAB
     Dosage: CYCLE 1 DAY 15 (C1D15)
     Route: 042
     Dates: start: 20181114
  7. ERDOS [Concomitant]
     Active Substance: ERDOSTEINE
     Indication: COUGH
     Route: 048
     Dates: start: 20181028, end: 20181104
  8. LEVOKACIN [Concomitant]
     Indication: PNEUMONIA
     Route: 048
     Dates: start: 20181106, end: 20181122
  9. CHLORAMBUCIL [Suspect]
     Active Substance: CHLORAMBUCIL
     Route: 048
     Dates: start: 20181101, end: 20181101
  10. ERDOS [Concomitant]
     Active Substance: ERDOSTEINE
     Indication: PRODUCTIVE COUGH
  11. TAZOLACTAM [Concomitant]
     Indication: PNEUMONIA
     Route: 042
     Dates: start: 20181001, end: 20181105
  12. SODIUM BICARBONATE. [Concomitant]
     Active Substance: SODIUM BICARBONATE
     Indication: PROPHYLAXIS
     Route: 042
     Dates: start: 20181101, end: 20181103
  13. OBINUTUZUMAB. [Suspect]
     Active Substance: OBINUTUZUMAB
     Dosage: CYCLE 1 DAY 8 (C1D8)
     Route: 042
     Dates: start: 20181108
  14. OBINUTUZUMAB. [Suspect]
     Active Substance: OBINUTUZUMAB
     Dosage: CYCLE 2 DAY 1 (C2D1)
     Route: 042
     Dates: start: 20190111, end: 20190111
  15. LEVOTUSS [Concomitant]
     Active Substance: LEVODROPROPIZINE
     Indication: PRODUCTIVE COUGH
  16. OBINUTUZUMAB. [Suspect]
     Active Substance: OBINUTUZUMAB
     Dosage: CYCLE 1 DAY 2 (C1D2)
     Route: 042
     Dates: start: 20181102
  17. ZYLORIC [Concomitant]
     Active Substance: ALLOPURINOL
     Route: 048
     Dates: start: 20181101, end: 20181122
  18. CHLORPHENAMINE MALEATE [Concomitant]
     Active Substance: CHLORPHENIRAMINE MALEATE
     Route: 042
     Dates: start: 20181101, end: 20181101
  19. LASIX [Concomitant]
     Active Substance: FUROSEMIDE
     Route: 042
     Dates: start: 20181114, end: 20181114
  20. CHLORAMBUCIL [Suspect]
     Active Substance: CHLORAMBUCIL
     Indication: CHRONIC LYMPHOCYTIC LEUKAEMIA
     Route: 048
     Dates: start: 20181101, end: 20181101
  21. CHLORAMBUCIL [Suspect]
     Active Substance: CHLORAMBUCIL
     Route: 048
     Dates: start: 20181114, end: 20181114
  22. CHLORPHENIRAMINE MALEATE. [Concomitant]
     Active Substance: CHLORPHENIRAMINE MALEATE
     Indication: PREMEDICATION
     Route: 042
     Dates: start: 20181101, end: 20181101
  23. DEXAMETHASONE SODIUM PHOSPHATE. [Concomitant]
     Active Substance: DEXAMETHASONE SODIUM PHOSPHATE
     Route: 042
     Dates: start: 20181101, end: 20181101
  24. CRAVIT [Concomitant]
     Active Substance: LEVOFLOXACIN
     Indication: PNEUMONIA
     Dosage: 750 MG/150 ML
     Route: 042
     Dates: start: 20181002, end: 20181105
  25. OBINUTUZUMAB. [Suspect]
     Active Substance: OBINUTUZUMAB
     Indication: CHRONIC LYMPHOCYTIC LEUKAEMIA
     Dosage: CYCLE 1 DAY 1 (C1D1)
     Route: 042
     Dates: start: 20181101
  26. CHLORAMBUCIL [Suspect]
     Active Substance: CHLORAMBUCIL
     Route: 048
     Dates: start: 20190111, end: 20190111
  27. DUPHALAC EASY [Concomitant]
     Route: 048
     Dates: start: 20181028, end: 20181103

REACTIONS (2)
  - Feeling cold [Recovered/Resolved]
  - Cytopenia [Recovering/Resolving]

NARRATIVE: CASE EVENT DATE: 20181101
